FAERS Safety Report 8304127-3 (Version None)
Quarter: 2012Q2

REPORT INFORMATION
  Report Type: 
  Country: None (occurrence: None)
  Receive Date: 20120423
  Receipt Date: 20120418
  Transmission Date: 20120825
  Serious: No
  Sender: FDA-Public Use
  Company Number: US-PFIZER INC-2012096592

PATIENT
  Sex: Male
  Weight: 102 kg

DRUGS (9)
  1. LYRICA [Suspect]
     Indication: FIBROMYALGIA
     Dosage: 50 MG, 3X/DAY
     Dates: start: 20120101, end: 20120301
  2. ABILIFY [Concomitant]
     Indication: MENTAL DISORDER
     Dosage: 20 MG, DAILY
     Route: 048
  3. WELLBUTRIN SR [Concomitant]
     Indication: MENTAL DISORDER
     Dosage: 150 MG, 2X/DAY
     Route: 048
  4. ACETAMINOPHEN AND HYDROCODONE BITARTRATE [Suspect]
     Indication: NEURALGIA
     Dosage: 325/10 MG, 1/2/3 TABLET EVERY SIX HRS
     Route: 048
  5. NASONEX [Concomitant]
     Indication: ASTHMA
     Dosage: 2 SPRAY, 3X/DAY
  6. LITHIUM CARBONATE [Concomitant]
     Indication: MENTAL DISORDER
     Dosage: 300 MG, 3X/DAY
     Route: 048
  7. VENTOLIN [Concomitant]
     Indication: ASTHMA
     Dosage: UNK, AS NEEDED
  8. CLARITIN [Concomitant]
     Dosage: UNK
  9. CLONAZEPAM [Concomitant]
     Indication: MENTAL DISORDER
     Dosage: 0.5 MG, 3X/DAY
     Route: 048

REACTIONS (2)
  - DRUG INEFFECTIVE [None]
  - HYPERAESTHESIA [None]
